FAERS Safety Report 22603374 (Version 1)
Quarter: 2023Q2

REPORT INFORMATION
  Report Type: Spontaneous
  Country: US (occurrence: US)
  Receive Date: 20230615
  Receipt Date: 20230615
  Transmission Date: 20230722
  Serious: Yes (Death, Other)
  Sender: FDA-Public Use
  Company Number: US-BRISTOL-MYERS SQUIBB COMPANY-2023-083732

PATIENT
  Age: 71 Year
  Sex: Female
  Weight: 93.4 kg

DRUGS (1)
  1. REVLIMID [Suspect]
     Active Substance: LENALIDOMIDE
     Indication: Plasma cell myeloma
     Dosage: 15MG DAILY FOR 21 DAYS THEN 7 DAYS OFF
     Route: 048
     Dates: start: 20230517, end: 20230601

REACTIONS (1)
  - Death [Fatal]

NARRATIVE: CASE EVENT DATE: 20230605
